FAERS Safety Report 15681145 (Version 1)
Quarter: 2018Q4

REPORT INFORMATION
  Report Type: Spontaneous
  Country: GB (occurrence: GB)
  Receive Date: 20181203
  Receipt Date: 20181203
  Transmission Date: 20190205
  Serious: Yes (Other)
  Sender: FDA-Public Use
  Company Number: GB-MYLANLABS-2018M1089760

PATIENT
  Age: 83 Year
  Sex: Male
  Weight: 66 kg

DRUGS (2)
  1. CLOPIDOGREL [Suspect]
     Active Substance: CLOPIDOGREL BISULFATE
     Indication: CEREBRAL SMALL VESSEL ISCHAEMIC DISEASE
     Dosage: 75 MILLIGRAM
     Route: 048
     Dates: start: 20180416, end: 20180511
  2. ATORVASTATIN [Concomitant]
     Active Substance: ATORVASTATIN
     Dosage: UNK

REACTIONS (3)
  - Erythema [Recovered/Resolved]
  - Rash macular [Recovered/Resolved]
  - Syncope [Recovered/Resolved]

NARRATIVE: CASE EVENT DATE: 20180416
